FAERS Safety Report 8085159-X (Version None)
Quarter: 2012Q1

REPORT INFORMATION
  Report Type: 
  Country: None (occurrence: None)
  Receive Date: 20120128
  Receipt Date: 20110320
  Transmission Date: 20120608
  Serious: No
  Sender: FDA-Public Use
  Company Number: US-ABBOTT-11P-163-0713215-00

PATIENT
  Age: 30 Year
  Sex: Male

DRUGS (6)
  1. FLEXERIL [Concomitant]
     Indication: PRODUCT USED FOR UNKNOWN INDICATION
     Dosage: AS NEEDED
  2. IBUPROFEN [Concomitant]
     Indication: PAIN
     Dosage: AS NEEDED
  3. INDOMETHACIN [Concomitant]
     Indication: INFLAMMATION
     Dosage: 12 HOURS AS NEEDED
  4. HUMIRA [Suspect]
     Indication: ANKYLOSING SPONDYLITIS
     Dates: start: 20101201
  5. NORCO [Concomitant]
     Indication: PAIN
     Dosage: 10/325MG AS NEEDED
  6. NAPROXEN (ALEVE) [Concomitant]
     Indication: PAIN
     Dosage: AS NEEDED

REACTIONS (1)
  - INJECTION SITE PAIN [None]
